FAERS Safety Report 6257586-4 (Version None)
Quarter: 2009Q3

REPORT INFORMATION
  Report Type: 
  Country: None (occurrence: None)
  Receive Date: 20090706
  Receipt Date: 20090706
  Transmission Date: 20100115
  Serious: Yes (Death)
  Sender: FDA-Public Use
  Company Number: US-ROXANE LABORATORIES, INC.-2009-RO-00648RO

PATIENT
  Sex: Male

DRUGS (2)
  1. LORAZEPAM [Suspect]
  2. ROXANOL [Suspect]

REACTIONS (2)
  - LUNG NEOPLASM MALIGNANT [None]
  - ORAL ADMINISTRATION COMPLICATION [None]
